FAERS Safety Report 23096461 (Version 1)
Quarter: 2023Q4

REPORT INFORMATION
  Report Type: Spontaneous
  Country: US (occurrence: US)
  Receive Date: 20231023
  Receipt Date: 20231023
  Transmission Date: 20240109
  Serious: No
  Sender: FDA-Public Use
  Company Number: US-PFIZER INC-202300334813

PATIENT
  Age: 66 Year
  Sex: Female

DRUGS (5)
  1. IBRANCE [Suspect]
     Active Substance: PALBOCICLIB
     Dosage: 125 MG, CYCLIC, ONCE DAILY ON DAYS 1 THROUGH 21 OF 28 DAY CYCLE
     Route: 048
     Dates: start: 2016
  2. CLINDAMYCIN [Concomitant]
     Active Substance: CLINDAMYCIN
  3. FISH OIL [Concomitant]
     Active Substance: FISH OIL
  4. LETROZOLE [Concomitant]
     Active Substance: LETROZOLE
  5. CALCIUM [Concomitant]
     Active Substance: CALCIUM

REACTIONS (1)
  - COVID-19 [Recovered/Resolved]
